FAERS Safety Report 9852469 (Version 1)
Quarter: 2014Q1

REPORT INFORMATION
  Report Type: Spontaneous
  Country: US (occurrence: None)
  Receive Date: 20140128
  Receipt Date: 20140128
  Transmission Date: 20141002
  Serious: Yes (Disabling)
  Sender: FDA-Public Use
  Company Number: None

PATIENT
  Age: 42 Year
  Sex: Female
  Weight: 90.72 kg

DRUGS (1)
  1. ESTRA-NORETH [Suspect]
     Indication: HORMONE REPLACEMENT THERAPY
     Dosage: 1 PILL ONCE DAILY TAKEN BY MOUITH
     Route: 048

REACTIONS (3)
  - Nausea [None]
  - Discomfort [None]
  - Flatulence [None]
